FAERS Safety Report 12900650 (Version 3)
Quarter: 2017Q2

REPORT INFORMATION
  Report Type: Spontaneous
  Country: US (occurrence: US)
  Receive Date: 20161101
  Receipt Date: 20170531
  Transmission Date: 20170830
  Serious: Yes (Other)
  Sender: FDA-Public Use
  Company Number: US-BAYER-2016-209135

PATIENT
  Age: 28 Year
  Sex: Female
  Weight: 62.13 kg

DRUGS (2)
  1. MICROGESTIN [Concomitant]
     Active Substance: ETHINYL ESTRADIOL\NORETHINDRONE ACETATE
     Dosage: UNK
     Dates: start: 2016
  2. MIRENA [Suspect]
     Active Substance: LEVONORGESTREL
     Indication: CONTRACEPTION
     Dosage: 20 MCG/24HR, CONT
     Route: 015
     Dates: start: 20140514, end: 201608

REACTIONS (3)
  - Pregnancy with contraceptive device [None]
  - Device expulsion [None]
  - Drug ineffective [None]

NARRATIVE: CASE EVENT DATE: 20141230
